FAERS Safety Report 9204660 (Version 2)
Quarter: 2014Q1

REPORT INFORMATION
  Report Type: Spontaneous
  Country: US (occurrence: US)
  Receive Date: 20130402
  Receipt Date: 20140324
  Transmission Date: 20141002
  Serious: Yes (Other)
  Sender: FDA-Public Use
  Company Number: US-BAYER-2013-039178

PATIENT
  Age: 26 Year
  Sex: Female

DRUGS (3)
  1. YAZ [Suspect]
     Route: 048
  2. YASMIN [Suspect]
     Route: 048
  3. OCELLA [Suspect]
     Route: 048

REACTIONS (9)
  - Cholelithiasis [None]
  - Cholecystitis [None]
  - Injury [None]
  - Pain [None]
  - General physical health deterioration [None]
  - Emotional distress [None]
  - Anxiety [None]
  - Anhedonia [None]
  - Pain [None]
